FAERS Safety Report 8192637-1 (Version None)
Quarter: 2012Q1

REPORT INFORMATION
  Report Type: 
  Country: None (occurrence: None)
  Receive Date: 20120308
  Receipt Date: 20120228
  Transmission Date: 20120608
  Serious: Yes (Hospitalization, Other)
  Sender: FDA-Public Use
  Company Number: JP-GE HEALTHCARE MEDICAL DIAGNOSTICS-OMPQ-NO-1202S-0231

PATIENT
  Sex: Female

DRUGS (12)
  1. NICORANDIL (NICORANDIS) [Concomitant]
     Dates: start: 20111206
  2. BISOPROLOL FUMARARE (MAINTATE) [Concomitant]
     Dates: start: 20111226
  3. CS-747S [Concomitant]
     Dates: start: 20111214
  4. ENALAPRIL MALEATE [Concomitant]
     Dates: start: 20111206
  5. ACETYLSALICYLIC ACID (BAYASPIRIN) [Concomitant]
     Dates: start: 20111206
  6. LIPITOR [Concomitant]
     Dates: start: 20111205
  7. LANSOPRAZOLE [Concomitant]
     Dates: start: 20111205
  8. CLOPIDOGREL [Concomitant]
     Dates: start: 20111214
  9. JANUVIA [Concomitant]
     Dates: start: 20111209
  10. LANTUS [Concomitant]
  11. APIDRA [Concomitant]
     Dates: start: 20111215
  12. OMNIPAQUE 140 [Suspect]
     Indication: CORONARY ARTERY DISEASE
     Route: 065
     Dates: start: 20111226, end: 20111226

REACTIONS (4)
  - CARDIAC FAILURE [None]
  - RENAL FAILURE ACUTE [None]
  - NEPHROPATHY TOXIC [None]
  - MYOCARDIAL INFARCTION [None]
